FAERS Safety Report 8476596-X (Version None)
Quarter: 2012Q2

REPORT INFORMATION
  Report Type: 
  Country: None (occurrence: None)
  Receive Date: 20120628
  Receipt Date: 20120620
  Transmission Date: 20120825
  Serious: Yes (Hospitalization)
  Sender: FDA-Public Use
  Company Number: DE-PFIZER INC-2012080214

PATIENT
  Age: 37 Year
  Sex: Male

DRUGS (2)
  1. DICLOFENAC [Concomitant]
     Indication: ANKYLOSING SPONDYLITIS
     Dosage: 75 MG, 2X/DAY
     Route: 048
     Dates: start: 20060701
  2. SULFASALAZINE [Suspect]
     Dosage: 2000 MG, 1X/DAY
     Dates: start: 20070109, end: 20070216

REACTIONS (1)
  - PSYCHOTIC DISORDER [None]
